FAERS Safety Report 9652426 (Version 4)
Quarter: 2013Q4

REPORT INFORMATION
  Report Type: Spontaneous
  Country: DK (occurrence: DK)
  Receive Date: 20131029
  Receipt Date: 20131111
  Transmission Date: 20140711
  Serious: Yes (Other)
  Sender: FDA-Public Use
  Company Number: DK-PFIZER INC-2013305367

PATIENT
  Sex: 0

DRUGS (2)
  1. MISOPROSTOL [Suspect]
     Indication: LABOUR INDUCTION
     Dosage: 50 MG, SINGLE
     Route: 064
     Dates: start: 20130720, end: 20130720
  2. MISOPROSTOL [Suspect]
     Dosage: 50 MG, SINGLE
     Route: 064
     Dates: start: 20130720, end: 20130720

REACTIONS (2)
  - Foetal exposure during pregnancy [Recovered/Resolved]
  - Foetal heart rate disorder [Recovered/Resolved]
